FAERS Safety Report 7903652-4 (Version None)
Quarter: 2011Q4

REPORT INFORMATION
  Report Type: 
  Country: None (occurrence: None)
  Receive Date: 20111107
  Receipt Date: 20110930
  Transmission Date: 20120403
  Serious: Yes (Life-Threatening)
  Sender: FDA-Public Use
  Company Number: 20110694

PATIENT
  Age: 51 Year
  Sex: Male
  Weight: 80 kg

DRUGS (22)
  1. ATIVAN [Concomitant]
  2. COLACE (DOCUSATE SODIUM) [Concomitant]
  3. SEROQUEL [Concomitant]
  4. EFFIENT [Concomitant]
  5. NOVASC (AMLODIPINE BESYLATE) [Concomitant]
  6. ZOCOR [Concomitant]
  7. METOPROLOL TARTRATE [Concomitant]
  8. VENOFER [Suspect]
     Indication: IRON DEFICIENCY
  9. NITROGLYCERIN [Concomitant]
  10. ASPIRIN [Concomitant]
  11. FLOMAX [Concomitant]
  12. RENAGEL [Concomitant]
  13. RAMIPRIL [Concomitant]
  14. FERROUS FUMARATE [Concomitant]
  15. EPREX [Concomitant]
  16. FUROSEMIDE [Concomitant]
  17. PANTOLOC (PANTOPRAZOLE) [Concomitant]
  18. PROLREL (HYDROMORPHONE) [Concomitant]
  19. HYDROMORPHONE HCL [Concomitant]
  20. REPLIVITE [Concomitant]
  21. CALCITRIOL INJECTION, USP (0132-25)(CALCITRIOL INJECTION) [Concomitant]
  22. CLONODINE HCL [Concomitant]

REACTIONS (10)
  - TACHYCARDIA [None]
  - PALLOR [None]
  - PALATAL OEDEMA [None]
  - DYSPNOEA [None]
  - RESTLESSNESS [None]
  - SWOLLEN TONGUE [None]
  - DRUG HYPERSENSITIVITY [None]
  - BLOOD PRESSURE SYSTOLIC INCREASED [None]
  - DYSPHAGIA [None]
  - HEART RATE IRREGULAR [None]
